FAERS Safety Report 6719585-5 (Version None)
Quarter: 2010Q2

REPORT INFORMATION
  Report Type: 
  Country: None (occurrence: None)
  Receive Date: 20100507
  Receipt Date: 20100422
  Transmission Date: 20101027
  Serious: Yes (Other)
  Sender: FDA-Public Use
  Company Number: 2010001600

PATIENT
  Age: 85 Year
  Sex: Female

DRUGS (5)
  1. TARCEVA [Suspect]
     Indication: LUNG NEOPLASM MALIGNANT
     Dosage: 150 MG ORAL
     Route: 048
     Dates: start: 20090106
  2. ACETAMINOPHEN [Concomitant]
  3. FENTANYL-100 [Concomitant]
  4. FIXICAL (CALCIUM CARBONATE) [Concomitant]
  5. SIMVASTATIN [Concomitant]

REACTIONS (10)
  - EYE PAIN [None]
  - FEEDING DISORDER [None]
  - GROWTH OF EYELASHES [None]
  - HIRSUTISM [None]
  - HYPERAESTHESIA [None]
  - MOVEMENT DISORDER [None]
  - PAIN IN EXTREMITY [None]
  - RASH [None]
  - SKIN IRRITATION [None]
  - STOMATITIS [None]
